FAERS Safety Report 19731105 (Version 2)
Quarter: 2021Q4

REPORT INFORMATION
  Report Type: Spontaneous
  Country: US (occurrence: US)
  Receive Date: 20210821
  Receipt Date: 20211008
  Transmission Date: 20220303
  Serious: No
  Sender: FDA-Public Use
  Company Number: US-UNITED THERAPEUTICS-UNT-2021-016201

PATIENT
  Age: 48 Year
  Sex: Female
  Weight: 62.59 kg

DRUGS (7)
  1. REMODULIN [Suspect]
     Active Substance: TREPROSTINIL
     Indication: Pulmonary arterial hypertension
     Dosage: UNK, UNK CONTINUING
     Route: 058
     Dates: start: 20210618
  2. REMODULIN [Suspect]
     Active Substance: TREPROSTINIL
     Dosage: 0.026 ?G/KG, CONTINUING
     Route: 058
     Dates: start: 2021
  3. REMODULIN [Suspect]
     Active Substance: TREPROSTINIL
     Dosage: UNK, UNK CONTINUING
     Route: 058
     Dates: start: 2021, end: 202109
  4. REMODULIN [Suspect]
     Active Substance: TREPROSTINIL
     Indication: Pulmonary arterial hypertension
     Dosage: UNK UNK, CONTINUING
     Route: 041
     Dates: start: 202109
  5. REMODULIN [Suspect]
     Active Substance: TREPROSTINIL
     Dosage: 0.0264 ?G/KG, CONTINUING
     Route: 041
     Dates: start: 202109
  6. OPSUMIT [Concomitant]
     Active Substance: MACITENTAN
     Indication: Pulmonary arterial hypertension
     Dosage: 10 MG, QD (1 TIME EVERY 1 DAY)
     Route: 048
  7. TADALAFIL [Concomitant]
     Active Substance: TADALAFIL
     Indication: Product used for unknown indication
     Dosage: UNK
     Route: 065

REACTIONS (9)
  - Infusion site pain [Recovered/Resolved]
  - Infusion site nodule [Recovering/Resolving]
  - Infusion site extravasation [Recovering/Resolving]
  - Infusion site erythema [Recovering/Resolving]
  - Infusion site pruritus [Recovering/Resolving]
  - Nausea [Recovering/Resolving]
  - Headache [Recovering/Resolving]
  - Pain in extremity [Recovering/Resolving]
  - Diarrhoea [Recovering/Resolving]

NARRATIVE: CASE EVENT DATE: 20210101
